FAERS Safety Report 7494226-0 (Version None)
Quarter: 2011Q2

REPORT INFORMATION
  Report Type: 
  Country: None (occurrence: None)
  Receive Date: 20110520
  Receipt Date: 20110513
  Transmission Date: 20111010
  Serious: Yes (Hospitalization, Other)
  Sender: FDA-Public Use
  Company Number: US-BRISTOL-MYERS SQUIBB COMPANY-15745185

PATIENT
  Age: 78 Year
  Sex: Female
  Weight: 93 kg

DRUGS (7)
  1. SOTALOL HCL [Concomitant]
  2. LASIX [Concomitant]
  3. POTASSIUM [Concomitant]
  4. MICARDIS [Concomitant]
  5. COUMADIN [Suspect]
     Dosage: STARTED 5YEARS OR MORE
  6. PRILOSEC [Concomitant]
  7. CARDIZEM [Concomitant]

REACTIONS (7)
  - MACULAR DEGENERATION [None]
  - GLAUCOMA [None]
  - DYSPNOEA [None]
  - ELECTROCARDIOGRAM ABNORMAL [None]
  - INTERNATIONAL NORMALISED RATIO INCREASED [None]
  - HAEMOGLOBIN DECREASED [None]
  - HAEMORRHAGE [None]
